FAERS Safety Report 12947130 (Version 1)
Quarter: 2016Q4

REPORT INFORMATION
  Report Type: Spontaneous
  Country: US (occurrence: US)
  Receive Date: 20161116
  Receipt Date: 20161116
  Transmission Date: 20170207
  Serious: Yes (Death, Life-Threatening, Hospitalization)
  Sender: FDA-Public Use
  Company Number: None

PATIENT
  Age: 56 Year
  Sex: Female
  Weight: 59.02 kg

DRUGS (7)
  1. MANGNESIM [Concomitant]
  2. SIMVISTATIN [Concomitant]
     Active Substance: SIMVASTATIN
  3. LAMICTAL [Concomitant]
     Active Substance: LAMOTRIGINE
  4. GADAVIST [Suspect]
     Active Substance: GADOBUTROL
     Indication: NUCLEAR MAGNETIC RESONANCE IMAGING BRAIN
     Dates: start: 20160529, end: 20160529
  5. PERCOCET [Concomitant]
     Active Substance: ACETAMINOPHEN\OXYCODONE HYDROCHLORIDE
  6. OXYCOTIN [Concomitant]
  7. TAXOL [Concomitant]
     Active Substance: PACLITAXEL

REACTIONS (1)
  - Shock [None]

NARRATIVE: CASE EVENT DATE: 20160527
